FAERS Safety Report 4280444-1 (Version None)
Quarter: 2004Q1

REPORT INFORMATION
  Report Type: 
  Country: None (occurrence: None)
  Receive Date: 20040127
  Receipt Date: 20040113
  Transmission Date: 20041129
  Serious: Yes (Death)
  Sender: FDA-Public Use
  Company Number: BE-JNJFOC-20040100969

PATIENT
  Age: 70 Year
  Sex: Male

DRUGS (2)
  1. DURAGESIC [Suspect]
     Dosage: 25 UG, 1 IN 1 DAY, TRANSDERMAL
     Route: 062
  2. MORFINE (MORPHINE) [Concomitant]

REACTIONS (3)
  - GENERAL PHYSICAL HEALTH DETERIORATION [None]
  - PNEUMONIA ASPIRATION [None]
  - SOMNOLENCE [None]
